FAERS Safety Report 4861156-X (Version None)
Quarter: 2005Q4

REPORT INFORMATION
  Report Type: 
  Country: None (occurrence: None)
  Receive Date: 20051216
  Receipt Date: 20051124
  Transmission Date: 20060501
  Serious: Yes (Hospitalization, Other)
  Sender: FDA-Public Use
  Company Number: 200514142GDS

PATIENT
  Age: 44 Year
  Sex: Female
  Weight: 61 kg

DRUGS (2)
  1. GLUCOBAY [Suspect]
     Indication: DIABETES MELLITUS
     Dosage: ORAL
     Route: 048
  2. WARFARIN [Concomitant]

REACTIONS (10)
  - ACTIVATED PARTIAL THROMBOPLASTIN TIME PROLONGED [None]
  - BLOOD POTASSIUM INCREASED [None]
  - CARDIAC MURMUR [None]
  - COAGULOPATHY [None]
  - INFLAMMATION [None]
  - PNEUMATOSIS INTESTINALIS [None]
  - PNEUMONIA [None]
  - PROTHROMBIN TIME PROLONGED [None]
  - PULMONARY OEDEMA [None]
  - RENAL IMPAIRMENT [None]
